FAERS Safety Report 9145352 (Version 1)
Quarter: 2013Q1

REPORT INFORMATION
  Report Type: Spontaneous
  Country: US (occurrence: None)
  Receive Date: 20130226
  Receipt Date: 20130226
  Transmission Date: 20140127
  Serious: Yes (Hospitalization)
  Sender: FDA-Public Use
  Company Number: None

PATIENT
  Sex: Female
  Weight: 94.4 kg

DRUGS (1)
  1. COLCRYS [Suspect]
     Indication: HEPATIC FUNCTION ABNORMAL
     Dosage: 0.6 MG BID PO
     Route: 048

REACTIONS (2)
  - Myopathy [None]
  - Myalgia [None]
